FAERS Safety Report 25379186 (Version 3)
Quarter: 2025Q2

REPORT INFORMATION
  Report Type: Spontaneous
  Country: BG (occurrence: BG)
  Receive Date: 20250530
  Receipt Date: 20250613
  Transmission Date: 20250716
  Serious: No
  Sender: PFIZER
  Company Number: BG-PFIZER INC-PV202500062968

PATIENT

DRUGS (1)
  1. NGENLA [Suspect]
     Active Substance: SOMATROGON-GHLA
     Indication: Growth hormone deficiency
     Route: 058

REACTIONS (9)
  - Arthralgia [Unknown]
  - Pain in extremity [Unknown]
  - Weight increased [Unknown]
  - Bone pain [Unknown]
  - Feeling hot [Unknown]
  - Injection site pain [Unknown]
  - Injection site swelling [Unknown]
  - Incorrect dose administered by device [Unknown]
  - Patient-device incompatibility [Unknown]
